FAERS Safety Report 7859952-X (Version None)
Quarter: 2011Q4

REPORT INFORMATION
  Report Type: 
  Country: None (occurrence: None)
  Receive Date: 20111026
  Receipt Date: 20111026
  Transmission Date: 20120403
  Serious: Yes (Hospitalization)
  Sender: FDA-Public Use
  Company Number: None

PATIENT
  Age: 63 Year
  Sex: Male
  Weight: 73.2 kg

DRUGS (1)
  1. ASPIRIN [Suspect]
     Indication: PAIN
     Dosage: 2 TAB EVERY DAY PO
     Route: 048
     Dates: start: 20080101, end: 20110719

REACTIONS (5)
  - VOMITING [None]
  - MELAENA [None]
  - HAEMATEMESIS [None]
  - GASTRIC HAEMORRHAGE [None]
  - NAUSEA [None]
